FAERS Safety Report 14162221 (Version 2)
Quarter: 2018Q1

REPORT INFORMATION
  Report Type: Spontaneous
  Country: US (occurrence: US)
  Receive Date: 20171106
  Receipt Date: 20180301
  Transmission Date: 20180508
  Serious: No
  Sender: FDA-Public Use
  Company Number: US-ASTRAZENECA-2017SF12064

PATIENT
  Sex: Female
  Weight: 83.9 kg

DRUGS (2)
  1. GABAPENTIN. [Suspect]
     Active Substance: GABAPENTIN
     Route: 065
  2. BYDUREON [Suspect]
     Active Substance: EXENATIDE
     Indication: TYPE 2 DIABETES MELLITUS
     Route: 058
     Dates: start: 2017

REACTIONS (13)
  - Pain in extremity [Unknown]
  - Gastrointestinal haemorrhage [Unknown]
  - Injection site haemorrhage [Unknown]
  - Injection site pruritus [Unknown]
  - Injection site pain [Unknown]
  - Stomach mass [Unknown]
  - Injection site bruising [Unknown]
  - Feeling abnormal [Unknown]
  - Condition aggravated [Unknown]
  - Product quality issue [Unknown]
  - Neuropathy peripheral [Unknown]
  - Weight decreased [Unknown]
  - Blood glucose decreased [Unknown]
